FAERS Safety Report 7389654-8 (Version None)
Quarter: 2011Q1

REPORT INFORMATION
  Report Type: 
  Country: None (occurrence: None)
  Receive Date: 20110324
  Receipt Date: 20110314
  Transmission Date: 20110831
  Serious: Yes (Other)
  Sender: FDA-Public Use
  Company Number: 861384

PATIENT
  Age: 61 Year
  Sex: Female

DRUGS (3)
  1. VANCOMYCIN HYDROCHLORIDE [Suspect]
     Indication: PERITONITIS
     Dosage: INTRAPERITIONAL
  2. DEXTROSE [Concomitant]
  3. GENTAMICIN SULFATE [Concomitant]

REACTIONS (4)
  - BACTERIAL INFECTION [None]
  - FUNGAL INFECTION [None]
  - DRUG HYPERSENSITIVITY [None]
  - PERITONITIS [None]
